FAERS Safety Report 23288128 (Version 3)
Quarter: 2024Q1

REPORT INFORMATION
  Report Type: Spontaneous
  Country: US (occurrence: US)
  Receive Date: 20231212
  Receipt Date: 20240208
  Transmission Date: 20240410
  Serious: Yes (Other)
  Sender: FDA-Public Use
  Company Number: US-BRISTOL-MYERS SQUIBB COMPANY-2023-178734

PATIENT
  Age: 75 Year
  Sex: Female

DRUGS (1)
  1. POMALYST [Suspect]
     Active Substance: POMALIDOMIDE
     Indication: Plasma cell myeloma
     Dosage: TAKE 1 WHOLE CAPSULE BY MOUTH W/ WATER W/ OR W/O FOOD AT THE SAME TIME DAILY ON DAYS 1-21 OF EACH 28
     Route: 048
     Dates: start: 20231121

REACTIONS (3)
  - Aphasia [Not Recovered/Not Resolved]
  - Influenza [Unknown]
  - Tremor [Recovering/Resolving]
